FAERS Safety Report 24171984 (Version 1)
Quarter: 2024Q3

REPORT INFORMATION
  Report Type: Spontaneous
  Country: CA (occurrence: CA)
  Receive Date: 20240805
  Receipt Date: 20240805
  Transmission Date: 20241016
  Serious: Yes (Hospitalization)
  Sender: AMGEN
  Company Number: CA-AMGEN-CANSP2024151711

PATIENT
  Age: 69 Year
  Sex: Female
  Weight: 50 kg

DRUGS (13)
  1. PROLIA [Suspect]
     Active Substance: DENOSUMAB
     Indication: Osteoporosis
     Dosage: 60 MILLIGRAM, Q6MO
     Route: 058
  2. ACTEMRA [Concomitant]
     Active Substance: TOCILIZUMAB
  3. AMLODIPINE [Concomitant]
     Active Substance: AMLODIPINE BESYLATE
  4. CALCIUM CARBONATE [Concomitant]
     Active Substance: CALCIUM CARBONATE
  5. DICLOFENAC [Concomitant]
     Active Substance: DICLOFENAC
  6. IBUPROFEN [Concomitant]
     Active Substance: IBUPROFEN
  7. MOMETASONE FUROATE [Concomitant]
     Active Substance: MOMETASONE FUROATE
  8. ORPHENADRINE [Concomitant]
     Active Substance: ORPHENADRINE
  9. PANTOPRAZOLE [Concomitant]
     Active Substance: PANTOPRAZOLE
  10. SULFASALAZINE [Concomitant]
     Active Substance: SULFASALAZINE
  11. VALACYCLOVIR [Concomitant]
     Active Substance: VALACYCLOVIR HYDROCHLORIDE
  12. VITAMIN D [Concomitant]
     Active Substance: VITAMIN D NOS
  13. ZOLMITRIPTAN [Concomitant]
     Active Substance: ZOLMITRIPTAN

REACTIONS (2)
  - Bone disorder [Recovering/Resolving]
  - Atypical femur fracture [Recovering/Resolving]
